FAERS Safety Report 5422693-2 (Version None)
Quarter: 2007Q3

REPORT INFORMATION
  Report Type: 
  Country: None (occurrence: None)
  Receive Date: 20070822
  Receipt Date: 20070816
  Transmission Date: 20080115
  Serious: Yes (Death, Hospitalization)
  Sender: FDA-Public Use
  Company Number: BR-ABBOTT-06P-020-0324842-01

PATIENT
  Sex: Male

DRUGS (4)
  1. RITONAVIR SOFT GELATIN CAPSULES [Suspect]
     Indication: HIV INFECTION
     Route: 048
     Dates: start: 20040602, end: 20050316
  2. TIPRANAVIR [Concomitant]
     Indication: HIV INFECTION
     Route: 048
     Dates: start: 20031008, end: 20050316
  3. GANCICLOVIR [Concomitant]
     Indication: CYTOMEGALOVIRUS INFECTION
  4. VANCOMYCIN [Concomitant]
     Indication: BRONCHOPNEUMONIA

REACTIONS (4)
  - ASTHENIA [None]
  - BRONCHOPNEUMONIA [None]
  - OESOPHAGITIS [None]
  - SEPSIS [None]
